FAERS Safety Report 4877939-6 (Version None)
Quarter: 2005Q4

REPORT INFORMATION
  Report Type: 
  Country: None (occurrence: None)
  Receive Date: 20051206
  Receipt Date: 20050912
  Transmission Date: 20060501
  Serious: No
  Sender: FDA-Public Use
  Company Number: USA0509107740

PATIENT
  Age: 40 Year
  Sex: Male

DRUGS (6)
  1. CYMBALTA [Suspect]
     Indication: DIABETIC NEUROPATHY
     Dosage: 30 MG IN THE MORNING
     Dates: start: 20050728, end: 20050814
  2. GLUCOPHAGE [Concomitant]
  3. ACTOS [Concomitant]
  4. PREVACID [Concomitant]
  5. CELEBREX [Concomitant]
  6. ULTRACET [Concomitant]

REACTIONS (2)
  - ABDOMINAL DISCOMFORT [None]
  - ABDOMINAL PAIN UPPER [None]
